FAERS Safety Report 22897140 (Version 5)
Quarter: 2023Q4

REPORT INFORMATION
  Report Type: Report from Study
  Country: US (occurrence: US)
  Receive Date: 20230902
  Receipt Date: 20231103
  Transmission Date: 20240110
  Serious: Yes (Other)
  Sender: FDA-Public Use
  Company Number: US-drreddys-CLI/USA/23/0175413

PATIENT
  Age: 23 Year
  Sex: Female

DRUGS (2)
  1. ACCUTANE [Suspect]
     Active Substance: ISOTRETINOIN
     Indication: Product used for unknown indication
     Dosage: RMA ISSUE DATE:27 OCTOBER 2022 05:57:04 PM, 30 NOVEMBER 2022 12:45:42 PM, 03 JANUARY 2023 05:31:05 P
     Dates: start: 20221027, end: 20230818
  2. ACCUTANE [Suspect]
     Active Substance: ISOTRETINOIN
     Dosage: RMA ISSUE DATE:10 MARCH 2023 02:22:55 PM, 12 APRIL 2023 05:27:46 PM, 16 MAY 2023 10:30:40 AM, 14 JUN
     Dates: start: 20221027, end: 20230818

REACTIONS (2)
  - Exposure during pregnancy [Unknown]
  - Sinusitis [Recovered/Resolved]

NARRATIVE: CASE EVENT DATE: 20230810
